FAERS Safety Report 8413805-7 (Version None)
Quarter: 2012Q2

REPORT INFORMATION
  Report Type: 
  Country: None (occurrence: None)
  Receive Date: 20120605
  Receipt Date: 20120529
  Transmission Date: 20120825
  Serious: Yes (Other)
  Sender: FDA-Public Use
  Company Number: GB-MERCK-1205USA05330

PATIENT
  Age: 37 Year
  Sex: Male
  Weight: 105 kg

DRUGS (4)
  1. JANUVIA [Suspect]
     Route: 048
     Dates: start: 20120202, end: 20120515
  2. AZATHIOPRINE [Concomitant]
     Route: 065
     Dates: start: 20120201, end: 20120328
  3. GLIMEPIRIDE [Concomitant]
     Route: 065
     Dates: start: 20120201, end: 20120401
  4. METFORMIN [Concomitant]
     Route: 065
     Dates: start: 20120201, end: 20120328

REACTIONS (1)
  - HYPERHIDROSIS [None]
